FAERS Safety Report 12180561 (Version 1)
Quarter: 2016Q1

REPORT INFORMATION
  Report Type: Report from Study
  Country: CA (occurrence: CA)
  Receive Date: 20160315
  Receipt Date: 20160315
  Transmission Date: 20160526
  Serious: Yes (Other)
  Sender: FDA-Public Use
  Company Number: CA-TAKEDA-2016TUS004128

PATIENT
  Age: 40 Year
  Sex: Male

DRUGS (3)
  1. VENOFER [Concomitant]
     Active Substance: IRON SUCROSE
     Dosage: UNK
  2. VEDOLIZUMAB [Suspect]
     Active Substance: VEDOLIZUMAB
     Indication: COLITIS ULCERATIVE
     Dosage: 300 MG, UNK
     Route: 042
     Dates: start: 20150604, end: 20160225
  3. ASACOL [Concomitant]
     Active Substance: MESALAMINE
     Dosage: UNK, QD

REACTIONS (2)
  - Ileostomy [Unknown]
  - Therapy responder [Unknown]

NARRATIVE: CASE EVENT DATE: 20160310
